FAERS Safety Report 5256621-X (Version None)
Quarter: 2007Q1

REPORT INFORMATION
  Report Type: 
  Country: None (occurrence: None)
  Receive Date: 20070306
  Receipt Date: 20070222
  Transmission Date: 20070707
  Serious: Yes (Hospitalization)
  Sender: FDA-Public Use
  Company Number: US-SANOFI-SYNTHELABO-A03200701613

PATIENT
  Sex: Female

DRUGS (6)
  1. KLONOPIN [Suspect]
     Indication: PANIC DISORDER
     Dosage: UNK
     Route: 048
  2. KLONOPIN [Suspect]
     Indication: ANXIETY
     Dosage: UNK
     Route: 048
  3. ETHANOL [Suspect]
     Dosage: UNK
     Route: 048
  4. AMBIEN [Suspect]
     Indication: INSOMNIA
     Dosage: UNK
     Route: 048
  5. XANAX [Suspect]
     Indication: PANIC DISORDER
     Dosage: UNK
     Route: 048
  6. XANAX [Suspect]
     Indication: ANXIETY
     Dosage: UNK
     Route: 048

REACTIONS (2)
  - AMNESIA [None]
  - ROAD TRAFFIC ACCIDENT [None]
